FAERS Safety Report 7179310-3 (Version None)
Quarter: 2010Q4

REPORT INFORMATION
  Report Type: 
  Country: None (occurrence: None)
  Receive Date: 20101221
  Receipt Date: 20101210
  Transmission Date: 20110411
  Serious: Yes (Other)
  Sender: FDA-Public Use
  Company Number: PHHY2010JP84503

PATIENT
  Sex: Female

DRUGS (10)
  1. COMTAN [Suspect]
     Indication: PARKINSON'S DISEASE
     Dosage: 400 MG, QD
  2. LEVODOPA BENSERAZIDE HYDROCHLO [Concomitant]
     Indication: PARKINSON'S DISEASE
     Dosage: 300 MG, UNK
     Route: 048
  3. SELEGILINE HCL [Concomitant]
     Indication: PARKINSON'S DISEASE
     Dosage: 2.5 MG, UNK
     Route: 048
  4. GABALON [Concomitant]
     Dosage: 15 MG, UNK
     Route: 048
  5. NITOROL [Concomitant]
     Dosage: 40 MG, UNK
     Route: 048
  6. SELBEX [Concomitant]
     Dosage: 100 MG, UNK
     Route: 048
  7. MEVALOTIN [Concomitant]
     Dosage: 5 MG, UNK
     Route: 048
  8. ONEALFA [Concomitant]
     Dosage: 0.5 UG, UNK
     Route: 048
     Dates: start: 20081103
  9. SEROQUEL [Concomitant]
     Dosage: 25 MG, UNK
     Route: 048
     Dates: start: 20081103
  10. AMLODIN [Concomitant]
     Dosage: 2.5 MG, UNK
     Route: 048

REACTIONS (3)
  - COMPRESSION FRACTURE [None]
  - HEPATIC FUNCTION ABNORMAL [None]
  - PARAPLEGIA [None]
